FAERS Safety Report 6525509-6 (Version None)
Quarter: 2010Q1

REPORT INFORMATION
  Report Type: 
  Country: None (occurrence: None)
  Receive Date: 20100104
  Receipt Date: 20091221
  Transmission Date: 20100710
  Serious: Yes (Hospitalization)
  Sender: FDA-Public Use
  Company Number: NO-PFIZER INC-2009312375

PATIENT
  Age: 21 Year
  Sex: Female

DRUGS (1)
  1. CYTOTEC [Suspect]
     Indication: ABORTION INDUCED
     Route: 048
     Dates: start: 20091122, end: 20091122

REACTIONS (6)
  - ABDOMINAL PAIN LOWER [None]
  - DEHYDRATION [None]
  - DIARRHOEA [None]
  - FEELING OF BODY TEMPERATURE CHANGE [None]
  - OFF LABEL USE [None]
  - VOMITING [None]
